FAERS Safety Report 7797913-X (Version None)
Quarter: 2011Q4

REPORT INFORMATION
  Report Type: 
  Country: None (occurrence: None)
  Receive Date: 20111004
  Receipt Date: 20111004
  Transmission Date: 20120403
  Serious: Yes (Hospitalization)
  Sender: FDA-Public Use
  Company Number: None

PATIENT
  Age: 72 Year
  Sex: Male
  Weight: 92.6 kg

DRUGS (3)
  1. LISINOPRIL [Suspect]
     Indication: HYPERTENSION
     Dosage: 2.5 MG AM PO
     Route: 048
     Dates: start: 20100614, end: 20110919
  2. LISINOPRIL [Suspect]
     Indication: DIABETES MELLITUS
     Dosage: 2.5 MG AM PO
     Route: 048
     Dates: start: 20100614, end: 20110919
  3. FUROSEMIDE [Suspect]
     Indication: OEDEMA PERIPHERAL
     Dosage: 20 MG EVERY DAY PO
     Route: 048
     Dates: start: 20110719, end: 20110915

REACTIONS (5)
  - BRADYCARDIA [None]
  - TOOTH EXTRACTION [None]
  - BLOOD POTASSIUM INCREASED [None]
  - DRUG HYPERSENSITIVITY [None]
  - OSTEOMYELITIS [None]
